FAERS Safety Report 5713673-8 (Version None)
Quarter: 2008Q2

REPORT INFORMATION
  Report Type: 
  Country: None (occurrence: None)
  Receive Date: 20080422
  Receipt Date: 20080415
  Transmission Date: 20081010
  Serious: Yes (Hospitalization)
  Sender: FDA-Public Use
  Company Number: US-GENENTECH-257231

PATIENT
  Age: 50 Year
  Sex: Male

DRUGS (2)
  1. RANIBIZUMAB [Suspect]
     Indication: MACULOPATHY
     Dosage: 0.5 MG, UNK
     Route: 031
     Dates: start: 20070917
  2. RANIBIZUMAB [Suspect]
     Indication: TELANGIECTASIA

REACTIONS (1)
  - PERIPHERAL EMBOLISM [None]
